FAERS Safety Report 5014768-7 (Version None)
Quarter: 2006Q2

REPORT INFORMATION
  Report Type: 
  Country: None (occurrence: None)
  Receive Date: 20060531
  Receipt Date: 20060522
  Transmission Date: 20061013
  Serious: Yes (Other)
  Sender: FDA-Public Use
  Company Number: PHBS2006BR07653

PATIENT
  Age: 23 Year
  Sex: Female
  Weight: 43 kg

DRUGS (7)
  1. BETAMETHASONE [Concomitant]
     Indication: VITILIGO
     Dosage: UNK, QHS
     Route: 061
     Dates: start: 20020101
  2. AZELAIC ACID [Concomitant]
     Indication: ACNE
     Route: 061
  3. ADAPALENE [Concomitant]
     Indication: ACNE
  4. NIVEA CREAM [Concomitant]
     Indication: DRY SKIN
     Route: 061
  5. VITAMINS WITH MINERALS [Suspect]
     Dates: start: 20020101
  6. SUN BATH PROTECTIVE TANNING LOTION [Concomitant]
  7. ELIDEL [Suspect]
     Indication: VITILIGO
     Dosage: UNK, QD
     Route: 061
     Dates: start: 20020101

REACTIONS (3)
  - DRY SKIN [None]
  - EYE OPERATION [None]
  - PHOTOPHOBIA [None]
